FAERS Safety Report 5289152-1 (Version None)
Quarter: 2007Q1

REPORT INFORMATION
  Report Type: 
  Country: None (occurrence: None)
  Receive Date: 20070124
  Receipt Date: 20060710
  Transmission Date: 20070707
  Serious: Yes (Hospitalization)
  Sender: FDA-Public Use
  Company Number: E2020-00236-SPO-US

PATIENT
  Age: 84 Year
  Sex: Female

DRUGS (13)
  1. ARICEPT [Suspect]
     Dosage: 20 MG, 2 IN 1 D, ORAL
     Route: 048
     Dates: start: 20060621, end: 20060710
  2. SEPTRA [Concomitant]
  3. MIRALAX [Concomitant]
  4. PULMICORT [Concomitant]
  5. CORDARONE [Concomitant]
  6. LOVENOX [Concomitant]
  7. ASPIRIN [Concomitant]
  8. NEXIUM [Concomitant]
  9. CALCIUM (CALCIUM) [Concomitant]
  10. NAMENDA [Concomitant]
  11. MULTI-VITAMINS [Concomitant]
  12. SINEMET [Concomitant]
  13. COLACE (DOCUSATE SODIUM) [Concomitant]

REACTIONS (2)
  - NAUSEA [None]
  - VOMITING [None]
